FAERS Safety Report 20937815 (Version 2)
Quarter: 2022Q2

REPORT INFORMATION
  Report Type: Report from Study
  Country: US (occurrence: None)
  Receive Date: 20220609
  Receipt Date: 20220628
  Transmission Date: 20220721
  Serious: Yes (Other)
  Sender: FDA-Public Use
  Company Number: US-Eisai Medical Research-EC-2022-116431

PATIENT
  Age: 53 Year
  Sex: Female
  Weight: 136.08 kg

DRUGS (17)
  1. LENVIMA [Suspect]
     Active Substance: LENVATINIB
     Indication: Endometrial neoplasm
     Route: 048
     Dates: start: 20220228, end: 2022
  2. LENVIMA [Suspect]
     Active Substance: LENVATINIB
     Route: 048
     Dates: start: 2022
  3. COLACE [Concomitant]
     Active Substance: DOCUSATE SODIUM
  4. BENADRYL [Concomitant]
     Active Substance: DIPHENHYDRAMINE HYDROCHLORIDE
  5. MELATONIN [Concomitant]
     Active Substance: MELATONIN
  6. MORPHINE SULFATE [Concomitant]
     Active Substance: MORPHINE SULFATE
  7. ONDANSETRON [Concomitant]
     Active Substance: ONDANSETRON
  8. PROCHLORPERAZINE [Concomitant]
     Active Substance: PROCHLORPERAZINE
  9. PANTOPRAZOLE [Concomitant]
     Active Substance: PANTOPRAZOLE
  10. GABAPENTIN [Concomitant]
     Active Substance: GABAPENTIN
  11. FLOMAX [Concomitant]
     Active Substance: TAMSULOSIN HYDROCHLORIDE
  12. CYCLOBENZAPRINE [Concomitant]
     Active Substance: CYCLOBENZAPRINE
  13. LISINOPRIL [Concomitant]
     Active Substance: LISINOPRIL
  14. METFORMIN ER GASTRIC [Concomitant]
  15. SERTRALINE [Concomitant]
     Active Substance: SERTRALINE HYDROCHLORIDE
  16. BENZONATATE [Concomitant]
     Active Substance: BENZONATATE
  17. XARELTO [Concomitant]
     Active Substance: RIVAROXABAN

REACTIONS (4)
  - Pulmonary embolism [Not Recovered/Not Resolved]
  - Hepatic vein thrombosis [Not Recovered/Not Resolved]
  - Stomatitis [Not Recovered/Not Resolved]
  - Arthralgia [Not Recovered/Not Resolved]

NARRATIVE: CASE EVENT DATE: 20220101
